FAERS Safety Report 19782924 (Version 1)
Quarter: 2021Q3

REPORT INFORMATION
  Report Type: Spontaneous
  Country: FR (occurrence: FR)
  Receive Date: 20210902
  Receipt Date: 20210902
  Transmission Date: 20211014
  Serious: Yes (Other)
  Sender: FDA-Public Use
  Company Number: NVSC2021FR197275

PATIENT
  Sex: Male

DRUGS (2)
  1. RITALINE L.P. [Suspect]
     Active Substance: METHYLPHENIDATE HYDROCHLORIDE
     Indication: DYSKINESIA
     Dosage: QD (IN THE MORNING)
     Route: 065
     Dates: start: 2019
  2. ABILIFY [Concomitant]
     Active Substance: ARIPIPRAZOLE
     Indication: PRODUCT USED FOR UNKNOWN INDICATION
     Dosage: QD (IN THE EVENING)
     Route: 065
     Dates: start: 2019

REACTIONS (2)
  - Oculogyric crisis [Unknown]
  - Product dose omission issue [Unknown]
